FAERS Safety Report 8417306-1 (Version None)
Quarter: 2012Q2

REPORT INFORMATION
  Report Type: 
  Country: None (occurrence: None)
  Receive Date: 20120606
  Receipt Date: 20120601
  Transmission Date: 20120825
  Serious: Yes (Hospitalization)
  Sender: FDA-Public Use
  Company Number: US-ELI_LILLY_AND_COMPANY-US201206000877

PATIENT
  Sex: Male

DRUGS (8)
  1. ADCIRCA [Suspect]
     Indication: PULMONARY ARTERIAL HYPERTENSION
     Dosage: 40 MG, QD
     Dates: start: 20120430
  2. BIFERA [Concomitant]
  3. METOLAZONE [Concomitant]
  4. SYNTHROID [Concomitant]
  5. ACIPHEX [Concomitant]
  6. COUMADIN [Concomitant]
  7. FUROSEMIDE [Concomitant]
  8. ADVAIR HFA [Concomitant]

REACTIONS (1)
  - HOSPITALISATION [None]
